FAERS Safety Report 6196889-9 (Version None)
Quarter: 2009Q2

REPORT INFORMATION
  Report Type: 
  Country: None (occurrence: None)
  Receive Date: 20090520
  Receipt Date: 20090512
  Transmission Date: 20091009
  Serious: Yes (Other)
  Sender: FDA-Public Use
  Company Number: US-BAYER-200910891BCC

PATIENT
  Age: 83 Year
  Sex: Female
  Weight: 100 kg

DRUGS (4)
  1. ASPIRIN [Suspect]
     Indication: DRUG USE FOR UNKNOWN INDICATION
     Route: 048
  2. PLAVIX [Suspect]
     Indication: DRUG USE FOR UNKNOWN INDICATION
     Route: 048
  3. COUMADIN [Suspect]
     Indication: DRUG USE FOR UNKNOWN INDICATION
     Dates: start: 20090310, end: 20090320
  4. LOVENOX [Concomitant]

REACTIONS (2)
  - DERMATITIS BULLOUS [None]
  - STEVENS-JOHNSON SYNDROME [None]
